FAERS Safety Report 15892066 (Version 1)
Quarter: 2019Q1

REPORT INFORMATION
  Report Type: Spontaneous
  Country: ES (occurrence: ES)
  Receive Date: 20190130
  Receipt Date: 20190130
  Transmission Date: 20190417
  Serious: No
  Sender: FDA-Public Use
  Company Number: ES-IPSEN-CABO-18012621

PATIENT
  Age: 64 Year
  Sex: Male

DRUGS (1)
  1. CABOMETYX [Suspect]
     Active Substance: CABOZANTINIB S-MALATE
     Indication: RENAL CANCER
     Dosage: 60 MG/24H
     Route: 048
     Dates: start: 20180111

REACTIONS (2)
  - Perianal erythema [Recovered/Resolved]
  - Intertrigo [Recovered/Resolved]

NARRATIVE: CASE EVENT DATE: 20180130
